FAERS Safety Report 15746083 (Version 4)
Quarter: 2019Q2

REPORT INFORMATION
  Report Type: Spontaneous
  Country: JP (occurrence: JP)
  Receive Date: 20181220
  Receipt Date: 20190425
  Transmission Date: 20190711
  Serious: Yes (Hospitalization)
  Sender: FDA-Public Use
  Company Number: JP-EISAI MEDICAL RESEARCH-EC-2018-049137

PATIENT
  Age: 57 Year
  Sex: Male

DRUGS (2)
  1. RABEPRAZOLE [Suspect]
     Active Substance: RABEPRAZOLE
     Indication: GASTRIC ULCER
     Dosage: DOSE AND FREQUENCY NOT PROVIDED
     Route: 048
  2. NIVOLUMAB [Suspect]
     Active Substance: NIVOLUMAB
     Indication: NEOPLASM MALIGNANT
     Route: 041

REACTIONS (1)
  - Tubulointerstitial nephritis [Recovered/Resolved]
